FAERS Safety Report 7131089-7 (Version None)
Quarter: 2010Q4

REPORT INFORMATION
  Report Type: 
  Country: None (occurrence: None)
  Receive Date: 20101124
  Receipt Date: 20101124
  Transmission Date: 20110411
  Serious: No
  Sender: FDA-Public Use
  Company Number: None

PATIENT
  Age: 77 Year
  Sex: Female
  Weight: 83.0083 kg

DRUGS (2)
  1. PREDNISONE [Suspect]
     Indication: INFLAMMATORY PAIN
     Dosage: 5 DAILY TO 1/2 STOP NOV 14, 10
     Dates: start: 20100901, end: 20101114
  2. PREDNISONE [Suspect]
     Indication: RHEUMATOID ARTHRITIS
     Dosage: 5 DAILY TO 1/2 STOP NOV 14, 10
     Dates: start: 20100901, end: 20101114

REACTIONS (4)
  - INSOMNIA [None]
  - POLLAKIURIA [None]
  - THIRST [None]
  - VISION BLURRED [None]
